FAERS Safety Report 12126598 (Version 1)
Quarter: 2016Q1

REPORT INFORMATION
  Report Type: Spontaneous
  Country: US (occurrence: US)
  Receive Date: 20160229
  Receipt Date: 20160229
  Transmission Date: 20160526
  Serious: Yes (Other)
  Sender: FDA-Public Use
  Company Number: US-JNJFOC-20160226198

PATIENT
  Sex: Male

DRUGS (1)
  1. IMBRUVICA [Suspect]
     Active Substance: IBRUTINIB
     Indication: NODAL MARGINAL ZONE B-CELL LYMPHOMA
     Dates: start: 20151218, end: 201602

REACTIONS (2)
  - Penile necrosis [Unknown]
  - Off label use [Unknown]
